FAERS Safety Report 5198421-5 (Version None)
Quarter: 2006Q4

REPORT INFORMATION
  Report Type: 
  Country: None (occurrence: None)
  Receive Date: 20061229
  Receipt Date: 20061229
  Transmission Date: 20070319
  Serious: No
  Sender: FDA-Public Use
  Company Number: None

PATIENT
  Age: 70 Year
  Sex: Female
  Weight: 66.6788 kg

DRUGS (2)
  1. ALBUTEROL [Suspect]
     Indication: RESPIRATORY DISORDER
     Dosage: 2 PUFFS A DAY
  2. ALPRAZOLAM [Suspect]
     Indication: ANXIETY
     Dosage: 2 A DAY

REACTIONS (3)
  - DRUG EFFECT DECREASED [None]
  - PHARMACEUTICAL PRODUCT COUNTERFEIT [None]
  - POOR QUALITY DRUG ADMINISTERED [None]
